FAERS Safety Report 7070392-6 (Version None)
Quarter: 2010Q4

REPORT INFORMATION
  Report Type: 
  Country: None (occurrence: None)
  Receive Date: 20101029
  Receipt Date: 20101020
  Transmission Date: 20110411
  Serious: Yes (Hospitalization)
  Sender: FDA-Public Use
  Company Number: BR-BIOGENIDEC-2010BI011837

PATIENT
  Age: 53 Year
  Sex: Male

DRUGS (3)
  1. AVONEX [Suspect]
     Indication: MULTIPLE SCLEROSIS
     Route: 030
     Dates: start: 20080901, end: 20091001
  2. AVONEX [Suspect]
     Dates: start: 20091201, end: 20100316
  3. AVONEX [Suspect]
     Dates: start: 20100501

REACTIONS (3)
  - GASTROINTESTINAL NEOPLASM [None]
  - INFECTION [None]
  - MALAISE [None]
